FAERS Safety Report 6885143-5 (Version None)
Quarter: 2010Q3

REPORT INFORMATION
  Report Type: 
  Country: None (occurrence: None)
  Receive Date: 20100729
  Receipt Date: 20071212
  Transmission Date: 20110219
  Serious: No
  Sender: FDA-Public Use
  Company Number: US-PFIZER INC-2007087404

PATIENT
  Sex: Male
  Weight: 59.87 kg

DRUGS (4)
  1. CELEBREX [Suspect]
     Indication: NOCTURIA
     Dates: start: 20060318, end: 20060404
  2. CELEBREX [Suspect]
     Indication: PROSTATITIS
     Dates: start: 20060405, end: 20060505
  3. ACIPHEX [Concomitant]
  4. XANAX [Concomitant]

REACTIONS (1)
  - TINNITUS [None]
